FAERS Safety Report 4853588-0 (Version None)
Quarter: 2005Q4

REPORT INFORMATION
  Report Type: 
  Country: None (occurrence: None)
  Receive Date: 20051212
  Receipt Date: 20051129
  Transmission Date: 20060501
  Serious: Yes (Hospitalization, Disabling)
  Sender: FDA-Public Use
  Company Number: US016439

PATIENT
  Age: 49 Year
  Sex: Female
  Weight: 56.6996 kg

DRUGS (4)
  1. TRISENOX [Suspect]
     Indication: ACUTE PROMYELOCYTIC LEUKAEMIA
     Dosage: 9 MG QD INTRAVENOUS DRIP
     Route: 041
     Dates: start: 20051114, end: 20051123
  2. ACYCLOVIR [Concomitant]
  3. CORTISONE ACETATE TAB [Concomitant]
  4. DILAUDID [Concomitant]

REACTIONS (6)
  - APHASIA [None]
  - COMMUNICATION DISORDER [None]
  - CRYING [None]
  - DEPRESSED LEVEL OF CONSCIOUSNESS [None]
  - MUSCULOSKELETAL STIFFNESS [None]
  - RESTLESS LEGS SYNDROME [None]
